FAERS Safety Report 5572099-0 (Version None)
Quarter: 2007Q4

REPORT INFORMATION
  Report Type: 
  Country: None (occurrence: None)
  Receive Date: 20071221
  Receipt Date: 20071214
  Transmission Date: 20080405
  Serious: Yes (Hospitalization)
  Sender: FDA-Public Use
  Company Number: PT-PFIZER INC-2007085477

PATIENT
  Sex: Female
  Weight: 56 kg

DRUGS (4)
  1. XANAX XR [Suspect]
     Route: 048
  2. MICARDIS HCT [Concomitant]
     Route: 048
  3. PLAVIX [Concomitant]
     Route: 048
  4. HIPERDIPINA [Concomitant]
     Route: 048

REACTIONS (3)
  - DYSPNOEA [None]
  - HYPERSENSITIVITY [None]
  - RASH [None]
